FAERS Safety Report 6645433-8 (Version None)
Quarter: 2010Q1

REPORT INFORMATION
  Report Type: 
  Country: None (occurrence: None)
  Receive Date: 20100322
  Receipt Date: 20100311
  Transmission Date: 20100710
  Serious: Yes (Other)
  Sender: FDA-Public Use
  Company Number: US-ASTRAZENECA-2010SE02278

PATIENT
  Age: 72 Year
  Sex: Female
  Weight: 54.4 kg

DRUGS (10)
  1. ARIMIDEX [Suspect]
     Indication: BREAST CANCER
     Route: 048
     Dates: start: 20000401
  2. VITAMIN-MINERAL COMPOUND TAB [Concomitant]
     Indication: EYE DISORDER
     Route: 050
  3. FISH OIL [Concomitant]
     Indication: CARDIAC DISORDER
     Route: 048
  4. ASPIRIN [Concomitant]
     Indication: CARDIAC DISORDER
     Route: 048
  5. CALCIUM [Concomitant]
     Indication: OSTEOPOROSIS
     Route: 048
  6. CITRACAL [Concomitant]
     Indication: OSTEOPOROSIS
     Route: 048
  7. CENTRUM SILVER [Concomitant]
     Indication: ROUTINE HEALTH MAINTENANCE
     Route: 048
  8. SYNTHROID [Concomitant]
     Indication: HYPERTHYROIDISM
     Route: 048
  9. RECLAST [Concomitant]
     Indication: OSTEOPOROSIS
     Dosage: YEARLY
     Route: 042
  10. DIAZEPAM [Concomitant]
     Indication: ANXIETY
     Route: 048

REACTIONS (1)
  - VISUAL ACUITY REDUCED [None]
